FAERS Safety Report 6105560-0 (Version None)
Quarter: 2009Q1

REPORT INFORMATION
  Report Type: 
  Country: None (occurrence: None)
  Receive Date: 20090304
  Receipt Date: 20090217
  Transmission Date: 20090719
  Serious: Yes (Death)
  Sender: FDA-Public Use
  Company Number: 2009020070

PATIENT
  Age: 28 Year
  Sex: Female

DRUGS (5)
  1. CARISOPRODOL [Suspect]
     Dosage: ORAL
     Route: 048
  2. OXYCODONE HCL [Suspect]
     Dosage: ORAL
     Route: 048
  3. BUTALBITAL [Suspect]
     Dosage: ORAL
     Route: 048
  4. AMITRIPTYLINE [Suspect]
     Dosage: ORAL
     Route: 048
  5. TRAMADOL HCL [Suspect]
     Dosage: ORAL
     Route: 048

REACTIONS (3)
  - CARDIAC ARREST [None]
  - COMPLETED SUICIDE [None]
  - RESPIRATORY ARREST [None]
